FAERS Safety Report 18512716 (Version 1)
Quarter: 2020Q4

REPORT INFORMATION
  Report Type: Spontaneous
  Country: US (occurrence: US)
  Receive Date: 20201117
  Receipt Date: 20201117
  Transmission Date: 20210114
  Serious: Yes (Other)
  Sender: FDA-Public Use
  Company Number: US-HIKMA PHARMACEUTICALS USA INC.-US-H14001-20-05112

PATIENT
  Age: 26 Year
  Sex: Female

DRUGS (1)
  1. HEPARIN [Suspect]
     Active Substance: HEPARIN SODIUM
     Indication: PRODUCT USED FOR UNKNOWN INDICATION
     Dosage: UNKNOWN
     Route: 042

REACTIONS (5)
  - Haemorrhage [Unknown]
  - Haematuria [Unknown]
  - Vaginal haemorrhage [Unknown]
  - Thrombocytopenia [Unknown]
  - Blood fibrinogen decreased [Unknown]
